FAERS Safety Report 9154436 (Version 1)
Quarter: 2013Q1

REPORT INFORMATION
  Report Type: Spontaneous
  Country: US (occurrence: None)
  Receive Date: 20130308
  Receipt Date: 20130308
  Transmission Date: 20140127
  Serious: Yes (Hospitalization, Other)
  Sender: FDA-Public Use
  Company Number: None

PATIENT
  Age: 38 Year
  Sex: Female
  Weight: 78.7 kg

DRUGS (1)
  1. PHENTERMINE [Suspect]
     Indication: OBESITY
     Route: 048
     Dates: start: 20120731, end: 20130306

REACTIONS (1)
  - Myocardial infarction [None]
